FAERS Safety Report 14967301 (Version 1)
Quarter: 2018Q2

REPORT INFORMATION
  Report Type: Spontaneous
  Country: US (occurrence: US)
  Receive Date: 20180604
  Receipt Date: 20180604
  Transmission Date: 20180711
  Serious: Yes (Death)
  Sender: FDA-Public Use
  Company Number: US-CHEPLA-C20170473

PATIENT
  Age: 30 Year
  Sex: Female

DRUGS (2)
  1. PARNATE [Suspect]
     Active Substance: TRANYLCYPROMINE SULFATE
     Indication: LEUKAEMIA RECURRENT
  2. TRETINOIN. [Suspect]
     Active Substance: TRETINOIN
     Indication: LEUKAEMIA RECURRENT

REACTIONS (2)
  - Product use in unapproved indication [Recovered/Resolved]
  - Disease progression [Fatal]
